FAERS Safety Report 17044538 (Version 1)
Quarter: 2019Q4

REPORT INFORMATION
  Report Type: Other
  Country: US (occurrence: US)
  Receive Date: 20191118
  Receipt Date: 20191118
  Transmission Date: 20200122
  Serious: No
  Sender: FDA-Public Use
  Company Number: US-LEADIANT BIOSCIENCES, INC.-2019STPI000430

PATIENT

DRUGS (12)
  1. CUVITRU [Concomitant]
     Active Substance: HUMAN IMMUNOGLOBULIN G
     Dosage: UNK
  2. METOPROLOL. [Concomitant]
     Active Substance: METOPROLOL
     Dosage: UNK
  3. MELATONIN [Concomitant]
     Active Substance: MELATONIN
     Dosage: UNK
  4. ASMANEX [Concomitant]
     Active Substance: MOMETASONE FUROATE
     Dosage: UNK
  5. REVCOVI [Suspect]
     Active Substance: ELAPEGADEMASE-LVLR
     Dosage: 1.5 ML
     Dates: start: 20190129
  6. MULTIVITAMIN [Concomitant]
     Active Substance: VITAMINS
     Dosage: UNK
  7. REVCOVI [Suspect]
     Active Substance: ELAPEGADEMASE-LVLR
     Indication: COMBINED IMMUNODEFICIENCY
     Dosage: 2.4 MILLIGRAM
     Route: 030
     Dates: start: 20190129
  8. DEPAKOTE [Concomitant]
     Active Substance: DIVALPROEX SODIUM
     Dosage: UNK
  9. CALCIUM [Concomitant]
     Active Substance: CALCIUM
     Dosage: UNK
  10. PAXIL [PIROXICAM] [Concomitant]
     Active Substance: PIROXICAM
     Dosage: UNK
  11. GAMMAKED [Concomitant]
     Active Substance: HUMAN IMMUNOGLOBULIN G
     Dosage: UNK
  12. BACTRIM [Concomitant]
     Active Substance: SULFAMETHOXAZOLE\TRIMETHOPRIM
     Dosage: UNK

REACTIONS (1)
  - Nasopharyngitis [Not Recovered/Not Resolved]

NARRATIVE: CASE EVENT DATE: 201908
